FAERS Safety Report 5148636-7 (Version None)
Quarter: 2006Q4

REPORT INFORMATION
  Report Type: 
  Country: None (occurrence: None)
  Receive Date: 20061107
  Receipt Date: 20061024
  Transmission Date: 20070319
  Serious: Yes (Death)
  Sender: FDA-Public Use
  Company Number: PAR_1022-2006

PATIENT
  Age: 48 Year

DRUGS (3)
  1. TEMAZEPAM [Suspect]
     Dosage: DF PO
     Route: 048
  2. ACETAMINOPHEN [Suspect]
     Dosage: DF PO
     Route: 048
  3. HYDROCODONE [Suspect]
     Dosage: DF PO
     Route: 048

REACTIONS (2)
  - MEDICATION ERROR [None]
  - POISONING [None]
